FAERS Safety Report 9655991 (Version 1)
Quarter: 2013Q4

REPORT INFORMATION
  Report Type: Spontaneous
  Country: US (occurrence: None)
  Receive Date: 20131029
  Receipt Date: 20131029
  Transmission Date: 20140711
  Serious: No
  Sender: FDA-Public Use
  Company Number: None

PATIENT
  Age: 64 Year
  Sex: Male
  Weight: 59.88 kg

DRUGS (1)
  1. TAMSULOSIN [Suspect]
     Indication: PROSTATIC DISORDER
     Dosage: 2 CAPSULES
     Route: 048
     Dates: start: 20131026, end: 20131026

REACTIONS (2)
  - Syncope [None]
  - Blood glucose increased [None]
